FAERS Safety Report 8487684 (Version 3)
Quarter: 2014Q3

REPORT INFORMATION
  Report Type: Spontaneous
  Country: US (occurrence: US)
  Receive Date: 20120402
  Receipt Date: 20140904
  Transmission Date: 20150326
  Serious: Yes (Hospitalization, Other)
  Sender: FDA-Public Use
  Company Number: US-ASTRAZENECA-2011SE68882

PATIENT
  Age: 74 Year
  Sex: Female
  Weight: 59 kg

DRUGS (18)
  1. UNIVACS [Concomitant]
     Indication: CARDIAC DISORDER
  2. ZOLAS [Concomitant]
     Indication: DEPRESSION
  3. UNIVACS [Concomitant]
     Indication: CARDIAC DISORDER
  4. UNIVACS [Concomitant]
     Indication: HYPERTENSION
  5. SEROQUEL [Suspect]
     Active Substance: QUETIAPINE FUMARATE
     Indication: BIPOLAR I DISORDER
     Dosage: 25 TO 50 MG ONCE A NIGHT
     Route: 048
     Dates: start: 201003
  6. UNIVACS [Concomitant]
     Indication: HYPERTENSION
  7. UNIVACS [Concomitant]
     Indication: DEPRESSION
  8. BABY ASPIRIN [Concomitant]
     Active Substance: ASPIRIN
     Indication: BLOOD CHOLESTEROL ABNORMAL
  9. KLONOPIN [Concomitant]
     Active Substance: CLONAZEPAM
     Indication: ANXIETY
  10. ZOLOFT [Concomitant]
     Active Substance: SERTRALINE HYDROCHLORIDE
     Indication: DEPRESSION
  11. SEROQUEL [Suspect]
     Active Substance: QUETIAPINE FUMARATE
     Indication: DEPRESSION
     Dosage: 25 TO 50 MG ONCE A NIGHT
     Route: 048
     Dates: start: 201003
  12. SEROQUEL [Suspect]
     Active Substance: QUETIAPINE FUMARATE
     Indication: INSOMNIA
     Dosage: 25 TO 50 MG ONCE A NIGHT
     Route: 048
     Dates: start: 201003
  13. SEROQUEL [Suspect]
     Active Substance: QUETIAPINE FUMARATE
     Indication: BIPOLAR I DISORDER
     Route: 048
     Dates: start: 2010
  14. ABILIFY [Concomitant]
     Active Substance: ARIPIPRAZOLE
     Dates: end: 201109
  15. SEROQUEL [Suspect]
     Active Substance: QUETIAPINE FUMARATE
     Indication: DEPRESSION
     Route: 048
     Dates: start: 2010
  16. SEROQUEL [Suspect]
     Active Substance: QUETIAPINE FUMARATE
     Indication: INSOMNIA
     Route: 048
     Dates: start: 2010
  17. MOTRIN [Suspect]
     Active Substance: IBUPROFEN
     Indication: BACK PAIN
  18. UNIVACS [Concomitant]
     Indication: DEPRESSION

REACTIONS (26)
  - Back pain [Unknown]
  - Vision blurred [Unknown]
  - Asthenia [Unknown]
  - Cystitis [Unknown]
  - Insomnia [Not Recovered/Not Resolved]
  - Haematochezia [Recovered/Resolved]
  - Contusion [Unknown]
  - Agitation [Unknown]
  - Decreased interest [Unknown]
  - Somnolence [Unknown]
  - Drug dose omission [Unknown]
  - Sinusitis [Unknown]
  - Fatigue [Not Recovered/Not Resolved]
  - Depressed mood [Not Recovered/Not Resolved]
  - Feeling cold [Unknown]
  - Weight increased [Unknown]
  - Leukaemia [Unknown]
  - Anaemia [Recovered/Resolved]
  - Epistaxis [Unknown]
  - Blood pressure decreased [Unknown]
  - Fatigue [Unknown]
  - Electrocardiogram abnormal [Unknown]
  - Anxiety [Unknown]
  - Cystitis noninfective [Unknown]
  - Increased appetite [Unknown]
  - Intentional product misuse [Not Recovered/Not Resolved]

NARRATIVE: CASE EVENT DATE: 2010
